FAERS Safety Report 8135003-7 (Version None)
Quarter: 2012Q1

REPORT INFORMATION
  Report Type: 
  Country: None (occurrence: None)
  Receive Date: 20120214
  Receipt Date: 20120209
  Transmission Date: 20120608
  Serious: No
  Sender: FDA-Public Use
  Company Number: US-PFIZER INC-2012033035

PATIENT
  Sex: Female

DRUGS (2)
  1. IBUPROFEN (ADVIL) [Suspect]
     Indication: INFLAMMATION
     Dosage: 4 DF, 3X/DAY
     Route: 048
     Dates: end: 20120201
  2. ESTRADIOL [Concomitant]
     Dosage: 0.5 MG, DAILY
     Route: 065

REACTIONS (2)
  - POOR QUALITY DRUG ADMINISTERED [None]
  - INCORRECT DOSE ADMINISTERED [None]
